FAERS Safety Report 18126228 (Version 1)
Quarter: 2020Q3

REPORT INFORMATION
  Report Type: Report from Study
  Country: None (occurrence: US)
  Receive Date: 20200808
  Receipt Date: 20200808
  Transmission Date: 20201103
  Serious: Yes (Hospitalization)
  Sender: FDA-Public Use
  Company Number: US-ABBVIE-20K-163-3516505-00

PATIENT
  Sex: Male

DRUGS (1)
  1. HUMIRA [Suspect]
     Active Substance: ADALIMUMAB
     Indication: PSORIATIC ARTHROPATHY
     Route: 058
     Dates: start: 20200125, end: 20200722

REACTIONS (4)
  - SARS-CoV-2 test positive [Unknown]
  - Pyrexia [Unknown]
  - Nasal congestion [Unknown]
  - Headache [Unknown]

NARRATIVE: CASE EVENT DATE: 2020
